FAERS Safety Report 25183966 (Version 4)
Quarter: 2025Q4

REPORT INFORMATION
  Report Type: Report from Study
  Country: CL (occurrence: CL)
  Receive Date: 20250410
  Receipt Date: 20251127
  Transmission Date: 20260117
  Serious: Yes (Hospitalization, Other)
  Sender: JOHNSON AND JOHNSON
  Company Number: CL-JNJFOC-20250307338

PATIENT
  Age: 65 Year
  Sex: Female

DRUGS (1)
  1. SIMPONI [Suspect]
     Active Substance: GOLIMUMAB
     Indication: Rheumatoid arthritis
     Dates: start: 20200605

REACTIONS (5)
  - Foreign body ingestion [Unknown]
  - Gastric perforation [Unknown]
  - Abdominal abscess [Unknown]
  - Diverticulum intestinal [Unknown]
  - Bursitis [Unknown]

NARRATIVE: CASE EVENT DATE: 20250301
